FAERS Safety Report 11233375 (Version 2)
Quarter: 2017Q4

REPORT INFORMATION
  Report Type: Spontaneous
  Country: JP (occurrence: JP)
  Receive Date: 20150702
  Receipt Date: 20171212
  Transmission Date: 20180320
  Serious: Yes (Other)
  Sender: FDA-Public Use
  Company Number: JP-AMGEN-JPNSP2015063886

PATIENT

DRUGS (6)
  1. LEVOFOLINIC ACID [Suspect]
     Active Substance: LEVOLEUCOVORIN
     Indication: COLON CANCER
     Dosage: UNK, CYC
     Route: 065
     Dates: start: 201302, end: 201308
  2. IRINOTECAN [Suspect]
     Active Substance: IRINOTECAN
     Indication: COLON CANCER
     Dosage: UNK, CYC
     Route: 065
     Dates: start: 201302, end: 201308
  3. FLUOROURACIL. [Suspect]
     Active Substance: FLUOROURACIL
     Indication: COLON CANCER
     Dosage: UNK, CYC
     Route: 065
     Dates: start: 201302, end: 201308
  4. CETUXIMAB. [Suspect]
     Active Substance: CETUXIMAB
     Indication: COLON CANCER
     Dosage: UNK, CYC
     Route: 065
     Dates: start: 201302
  5. PANITUMUMAB [Suspect]
     Active Substance: PANITUMUMAB
     Indication: COLON CANCER
     Dosage: UNK, CYC
     Route: 065
     Dates: start: 201302, end: 201308
  6. NADIFLOXACIN [Concomitant]
     Active Substance: NADIFLOXACIN
     Indication: COLON CANCER
     Dosage: UNK

REACTIONS (7)
  - Diabetes mellitus [Unknown]
  - Ecthyma [Unknown]
  - Malaise [Unknown]
  - Blister [Unknown]
  - Skin lesion [Unknown]
  - Rash [Recovering/Resolving]
  - Erythema [Unknown]
